FAERS Safety Report 6108508-8 (Version None)
Quarter: 2009Q1

REPORT INFORMATION
  Report Type: 
  Country: None (occurrence: None)
  Receive Date: 20090309
  Receipt Date: 20090305
  Transmission Date: 20090719
  Serious: No
  Sender: FDA-Public Use
  Company Number: US-B.I. PHARMACEUTICALS,INC./RIDGEFIELD-2009-BP-02708BP

PATIENT
  Sex: Male

DRUGS (9)
  1. FLOMAX [Suspect]
  2. PROTONIX [Suspect]
  3. NAMENDA [Suspect]
  4. ALTACE [Suspect]
  5. LIPITROL [Suspect]
  6. NORVASC [Suspect]
  7. TOPROL-XL [Suspect]
  8. ASPIRIN [Suspect]
  9. XALATAN [Suspect]

REACTIONS (3)
  - ANOREXIA [None]
  - NAUSEA [None]
  - WEIGHT DECREASED [None]
